FAERS Safety Report 17237447 (Version 2)
Quarter: 2020Q1

REPORT INFORMATION
  Report Type: Report from Study
  Country: CN (occurrence: CN)
  Receive Date: 20200106
  Receipt Date: 20200117
  Transmission Date: 20200409
  Serious: Yes (Other)
  Sender: FDA-Public Use
  Company Number: CN-JNJFOC-20191242786

PATIENT
  Age: 22 Year
  Sex: Female
  Weight: 44 kg

DRUGS (1)
  1. BEDAQUILINE [Suspect]
     Active Substance: BEDAQUILINE
     Indication: TUBERCULOSIS
     Route: 048
     Dates: start: 20191210

REACTIONS (2)
  - Aspartate aminotransferase increased [Unknown]
  - Heart injury [Recovering/Resolving]

NARRATIVE: CASE EVENT DATE: 20191225
